FAERS Safety Report 10549726 (Version 2)
Quarter: 2015Q2

REPORT INFORMATION
  Report Type: Spontaneous
  Country: US (occurrence: US)
  Receive Date: 20141028
  Receipt Date: 20150501
  Transmission Date: 20150821
  Serious: Yes (Death, Other)
  Sender: FDA-Public Use
  Company Number: US-SHIRE-US201407284

PATIENT
  Age: 97 Year
  Sex: Female

DRUGS (1)
  1. LIALDA [Suspect]
     Active Substance: MESALAMINE
     Indication: COLITIS ULCERATIVE
     Dosage: 1.2 G, 2X/DAY:BID
     Route: 048
     Dates: start: 201309

REACTIONS (3)
  - Death [Fatal]
  - Inappropriate schedule of drug administration [Unknown]
  - Malaise [Fatal]

NARRATIVE: CASE EVENT DATE: 20140923
